FAERS Safety Report 14189196 (Version 1)
Quarter: 2017Q4

REPORT INFORMATION
  Report Type: Spontaneous
  Country: GB (occurrence: GB)
  Receive Date: 20171115
  Receipt Date: 20171115
  Transmission Date: 20180321
  Serious: Yes (Disabling, Other)
  Sender: FDA-Public Use
  Company Number: GB-ACCORD-060931

PATIENT
  Age: 74 Year
  Sex: Male
  Weight: 68 kg

DRUGS (14)
  1. CLOPIDOGREL [Concomitant]
     Active Substance: CLOPIDOGREL BISULFATE
     Dates: start: 20170920
  2. ALLOPURINOL. [Concomitant]
     Active Substance: ALLOPURINOL
     Dates: start: 20170504
  3. BETAMETHASONE. [Concomitant]
     Active Substance: BETAMETHASONE
     Dosage: AS DIRECTED
     Dates: start: 20160426
  4. ENALAPRIL [Concomitant]
     Active Substance: ENALAPRIL
     Dosage: TAKE ONE DAILY
     Dates: start: 20170808
  5. LANSOPRAZOLE. [Concomitant]
     Active Substance: LANSOPRAZOLE
     Dates: start: 20170808
  6. VENTOLIN [Concomitant]
     Active Substance: ALBUTEROL SULFATE
     Route: 055
     Dates: start: 20170808
  7. SIMVASTATIN. [Concomitant]
     Active Substance: SIMVASTATIN
     Dosage: NIGHT
     Dates: start: 20170530
  8. OXYBUTYNIN/OXYBUTYNIN HYDROCHLORIDE [Suspect]
     Active Substance: OXYBUTYNIN
     Indication: URGE INCONTINENCE
     Route: 048
  9. TAMSULOSIN/TAMSULOSIN HYDROCHLORIDE [Concomitant]
     Dates: start: 20171024
  10. ACETYLSALICYLIC ACID [Concomitant]
     Active Substance: ASPIRIN
     Dates: start: 20170808
  11. ANUSOL NOS [Concomitant]
     Active Substance: BALSAM PERU\BENZYL BENZOATE\BISMUTH HYDROXIDE\BISMUTH SUBGALLATE\HYDROCORTISONE ACETATE\ZINC OXIDE
     Dosage: APPLY
     Dates: start: 20170221
  12. BETAHISTINE [Concomitant]
     Active Substance: BETAHISTINE
     Dates: start: 20170511
  13. SIRDUPLA [Concomitant]
     Active Substance: FLUTICASONE PROPIONATE\SALMETEROL XINAFOATE
     Route: 055
     Dates: start: 20170808
  14. TIOTROPIUM/TIOTROPIUM BROMIDE [Concomitant]
     Dosage: AS DIRECTED
     Dates: start: 20170407

REACTIONS (1)
  - Urinary incontinence [Recovering/Resolving]

NARRATIVE: CASE EVENT DATE: 20170920
